FAERS Safety Report 6900062-3 (Version None)
Quarter: 2010Q3

REPORT INFORMATION
  Report Type: 
  Country: None (occurrence: None)
  Receive Date: 20100708
  Receipt Date: 20100429
  Transmission Date: 20110219
  Serious: Yes (Other)
  Sender: FDA-Public Use
  Company Number: 2010044365

PATIENT
  Sex: Female
  Weight: 57.1 kg

DRUGS (2)
  1. CHANTIX [Suspect]
     Indication: SMOKING CESSATION THERAPY
     Dosage: 0.5 MG, 1X/DAY, ORAL
     Route: 048
     Dates: start: 20100301, end: 20100407
  2. ORTHO TRI-CYCLEN [Concomitant]

REACTIONS (5)
  - ABDOMINAL DISTENSION [None]
  - APHTHOUS STOMATITIS [None]
  - CONSTIPATION [None]
  - MENSTRUATION IRREGULAR [None]
  - VITREOUS FLOATERS [None]
